FAERS Safety Report 4873293-4 (Version None)
Quarter: 2005Q4

REPORT INFORMATION
  Report Type: 
  Country: None (occurrence: None)
  Receive Date: 20051229
  Receipt Date: 20051215
  Transmission Date: 20060501
  Serious: Yes (Other)
  Sender: FDA-Public Use
  Company Number: 2005BH003635

PATIENT
  Age: 66 Year
  Sex: Male
  Weight: 77.5 kg

DRUGS (10)
  1. RECOMBINATE [Suspect]
     Indication: FACTOR VIII DEFICIENCY
     Dosage: 1500 UNITS; 3X A WEEK; IV
     Route: 042
  2. MS CONTIN [Concomitant]
  3. LASIX [Concomitant]
  4. PHOSLO [Concomitant]
  5. COLACE [Concomitant]
  6. LEXAPRO [Concomitant]
  7. LOPRESSOR [Concomitant]
  8. REMEGEL [Concomitant]
  9. STAVUDINE [Concomitant]
  10. INSULIN [Concomitant]

REACTIONS (1)
  - HEPATITIS B ANTIGEN POSITIVE [None]
